FAERS Safety Report 20230820 (Version 10)
Quarter: 2024Q1

REPORT INFORMATION
  Report Type: Other
  Country: JP (occurrence: JP)
  Receive Date: 20211227
  Receipt Date: 20240305
  Transmission Date: 20240410
  Serious: Yes (Death, Hospitalization, Other)
  Sender: FDA-Public Use
  Company Number: JP-CHUGAI-2021026441

PATIENT
  Age: 78 Year
  Sex: Male
  Weight: 59.5 kg

DRUGS (9)
  1. TECENTRIQ [Suspect]
     Active Substance: ATEZOLIZUMAB
     Indication: Hepatocellular carcinoma
     Route: 065
     Dates: start: 20211011, end: 20211122
  2. AVASTIN [Suspect]
     Active Substance: BEVACIZUMAB
     Indication: Hepatocellular carcinoma
     Route: 065
     Dates: start: 20211011, end: 20211122
  3. XARELTO [Concomitant]
     Active Substance: RIVAROXABAN
     Indication: Portal vein thrombosis
     Dosage: 15 MILLIGRAM, QD
     Route: 048
     Dates: start: 20210218, end: 20211211
  4. XARELTO [Concomitant]
     Active Substance: RIVAROXABAN
     Dosage: 15 MILLIGRAM, QD
     Route: 048
     Dates: start: 20211225, end: 20220107
  5. AMINO ACIDS, SOURCE UNSPECIFIED [Concomitant]
     Active Substance: AMINO ACIDS, SOURCE UNSPECIFIED
     Dosage: 1 DOSAGE FORM, TID
     Route: 048
     Dates: start: 20210921, end: 20211211
  6. AMINO ACIDS, SOURCE UNSPECIFIED [Concomitant]
     Active Substance: AMINO ACIDS, SOURCE UNSPECIFIED
     Route: 048
     Dates: start: 20211216
  7. RABEPRAZOLE SODIUM [Concomitant]
     Active Substance: RABEPRAZOLE SODIUM
     Dosage: 10 MILLIGRAM, QD
     Route: 048
     Dates: end: 20211211
  8. RABEPRAZOLE SODIUM [Concomitant]
     Active Substance: RABEPRAZOLE SODIUM
     Dosage: 10 MILLIGRAM, QD
     Route: 048
     Dates: start: 20211215
  9. AMPICILLIN [Concomitant]
     Active Substance: AMPICILLIN
     Dosage: UNK

REACTIONS (13)
  - Endocarditis [Recovering/Resolving]
  - Spontaneous bacterial peritonitis [Unknown]
  - Hepatic failure [Recovering/Resolving]
  - Hepatic encephalopathy [Unknown]
  - Dysphonia [Recovered/Resolved]
  - Malaise [Recovered/Resolved]
  - White blood cell count decreased [Recovered/Resolved]
  - Blood bilirubin increased [Recovered/Resolved]
  - Hypertension [Recovered/Resolved]
  - Hepatocellular carcinoma [Fatal]
  - Hepatic infection [Unknown]
  - Tinnitus [Recovered/Resolved]
  - Hypersensitivity [Recovered/Resolved]

NARRATIVE: CASE EVENT DATE: 20211101
